FAERS Safety Report 8575415-0 (Version None)
Quarter: 2012Q3

REPORT INFORMATION
  Report Type: 
  Country: None (occurrence: None)
  Receive Date: 20120807
  Receipt Date: 20120803
  Transmission Date: 20120928
  Serious: Yes (Death)
  Sender: FDA-Public Use
  Company Number: SE-SANOFI-AVENTIS-2012SA055960

PATIENT
  Sex: Female

DRUGS (2)
  1. SUNITINIB MALATE [Suspect]
     Dosage: FREQUENCY : FROM DAYS 2 TO 15 EVERY THREE WEEKS
     Route: 048
  2. DOCETAXEL [Suspect]
     Route: 042

REACTIONS (1)
  - CARDIAC FAILURE [None]
